FAERS Safety Report 24016077 (Version 1)
Quarter: 2024Q2

REPORT INFORMATION
  Report Type: Spontaneous
  Country: GB (occurrence: GB)
  Receive Date: 20240626
  Receipt Date: 20240626
  Transmission Date: 20240717
  Serious: Yes (Death)
  Sender: FDA-Public Use
  Company Number: GB-AMGEN-GBRSP2024120177

PATIENT
  Sex: Female

DRUGS (1)
  1. ARANESP [Suspect]
     Active Substance: DARBEPOETIN ALFA
     Indication: Dialysis
     Dosage: 80 MICROGRAM, Q3WK
     Route: 065

REACTIONS (1)
  - Death [Fatal]
